FAERS Safety Report 6181399-5 (Version None)
Quarter: 2009Q2

REPORT INFORMATION
  Report Type: 
  Country: None (occurrence: None)
  Receive Date: 20090505
  Receipt Date: 20090505
  Transmission Date: 20091009
  Serious: Yes (Other)
  Sender: FDA-Public Use
  Company Number: None

PATIENT
  Sex: Female
  Weight: 2.18 kg

DRUGS (16)
  1. AVASTIN [Suspect]
     Indication: RETINOPATHY OF PREMATURITY
     Dosage: 0.75MG/0.03ML ONCE, ROUTE: 046
     Dates: start: 20090211
  2. BUDESONIDE [Concomitant]
  3. CHLOROTHIAZIDE [Concomitant]
  4. CYCLOPENTOLATE OPTHALMIC [Concomitant]
  5. MAXITROL [Concomitant]
  6. ERYTHROMYCIN ETHYLSUCCINATE [Concomitant]
  7. FERROUS SULFATE TAB [Concomitant]
  8. LEVALBUTEROL HCL [Concomitant]
  9. METOCLOPRAMIDE [Concomitant]
  10. MULTI-VITAMIN [Concomitant]
  11. PANTOPRAZOLE SODIUM [Concomitant]
  12. SODIUM CHLORIDE [Concomitant]
  13. SPIRONOLACTONE [Concomitant]
  14. ACETAMINOPHEN [Concomitant]
  15. FENTANYL [Concomitant]
  16. MIDOZOLAM [Concomitant]

REACTIONS (1)
  - CORNEAL DEFECT [None]
